FAERS Safety Report 6961562-3 (Version None)
Quarter: 2010Q3

REPORT INFORMATION
  Report Type: 
  Country: None (occurrence: None)
  Receive Date: 20100901
  Receipt Date: 20100823
  Transmission Date: 20110219
  Serious: Yes (Hospitalization)
  Sender: FDA-Public Use
  Company Number: GB-AMGEN-KDC422192

PATIENT
  Sex: Male

DRUGS (9)
  1. NEULASTA [Suspect]
     Indication: LYMPHOMA
     Route: 058
     Dates: start: 20100524, end: 20100524
  2. PREDNISOLONE [Suspect]
     Route: 048
     Dates: start: 20100504, end: 20100518
  3. RITUXIMAB [Suspect]
     Route: 042
     Dates: start: 20100514, end: 20100514
  4. GEMCITABINE [Suspect]
     Route: 042
     Dates: start: 20100514, end: 20100524
  5. CYCLOPHOSPHAMIDE [Suspect]
     Route: 042
     Dates: start: 20100514, end: 20100514
  6. VINCRISTINE [Suspect]
     Route: 042
     Dates: start: 20100514, end: 20100514
  7. LANSOPRAZOLE [Concomitant]
     Dates: start: 19970101
  8. TAMSULOSIN HCL [Concomitant]
     Dates: start: 20100526
  9. ALLOPURINOL [Concomitant]
     Dates: start: 20100514

REACTIONS (2)
  - MALAISE [None]
  - MYOPATHY [None]
